FAERS Safety Report 24374217 (Version 1)
Quarter: 2024Q3

REPORT INFORMATION
  Report Type: Spontaneous
  Country: US (occurrence: None)
  Receive Date: 20240927
  Receipt Date: 20240927
  Transmission Date: 20241016
  Serious: Yes (Other)
  Sender: Public
  Company Number: None

PATIENT
  Age: 33 Year
  Sex: Male
  Weight: 111 kg

DRUGS (2)
  1. PAXLOVID [Suspect]
     Active Substance: NIRMATRELVIR\RITONAVIR
     Indication: COVID-19
     Dates: start: 20240916, end: 20240920
  2. EVEROLIMUS [Concomitant]
     Active Substance: EVEROLIMUS
     Dates: start: 20240901

REACTIONS (4)
  - Renal impairment [None]
  - Thrombocytopenia [None]
  - Drug level increased [None]
  - Incorrect dose administered [None]

NARRATIVE: CASE EVENT DATE: 20240927
